FAERS Safety Report 4768108-9 (Version None)
Quarter: 2005Q3

REPORT INFORMATION
  Report Type: 
  Country: None (occurrence: None)
  Receive Date: 20050912
  Receipt Date: 20050912
  Transmission Date: 20060218
  Serious: Yes (Other)
  Sender: FDA-Public Use
  Company Number: None

PATIENT
  Age: 33 Year
  Sex: Female
  Weight: 77.1115 kg

DRUGS (2)
  1. TRAZADONE 50MG [Suspect]
     Indication: DEPRESSION
     Dosage: 50 MG AT BED TIME PO
     Route: 048
     Dates: start: 20050807, end: 20050909
  2. TRAZADONE 50MG [Suspect]
     Indication: SLEEP DISORDER
     Dosage: 50 MG AT BED TIME PO
     Route: 048
     Dates: start: 20050807, end: 20050909

REACTIONS (1)
  - SOMNOLENCE [None]
